FAERS Safety Report 11164449 (Version 4)
Quarter: 2015Q3

REPORT INFORMATION
  Report Type: Spontaneous
  Country: JP (occurrence: JP)
  Receive Date: 20150604
  Receipt Date: 20150828
  Transmission Date: 20151125
  Serious: Yes (Hospitalization, Other)
  Sender: FDA-Public Use
  Company Number: JP-GLAXOSMITHKLINE-JP2015JPN073395

PATIENT
  Age: 78 Year
  Sex: Female
  Weight: 38 kg

DRUGS (1)
  1. VOTRIENT [Suspect]
     Active Substance: PAZOPANIB HYDROCHLORIDE
     Indication: LIPOSARCOMA
     Dosage: 600 MG, QD
     Route: 048
     Dates: start: 20150204, end: 20150521

REACTIONS (7)
  - Pleural effusion [Recovering/Resolving]
  - Ascites [Recovering/Resolving]
  - Oedema peripheral [Recovering/Resolving]
  - No therapeutic response [Unknown]
  - Hypertension [Unknown]
  - Proteinuria [Recovering/Resolving]
  - Nephrotic syndrome [Unknown]

NARRATIVE: CASE EVENT DATE: 20150521
